FAERS Safety Report 5336390-5 (Version None)
Quarter: 2007Q2

REPORT INFORMATION
  Report Type: 
  Country: None (occurrence: None)
  Receive Date: 20070523
  Receipt Date: 20070514
  Transmission Date: 20071010
  Serious: Yes (Hospitalization)
  Sender: FDA-Public Use
  Company Number: S07-USA-01647

PATIENT
  Age: 30 Year
  Sex: Female

DRUGS (4)
  1. LEXAPRO [Suspect]
     Indication: ANXIETY
     Dosage: 20 MG QD PO
     Route: 048
     Dates: start: 20050101
  2. MUCINEX D (GUAIFENESIN/PSEUDOEPHEDRINE) [Concomitant]
  3. TUMS (CALCIUM CARBONATE) [Concomitant]
  4. ZANTAC [Concomitant]

REACTIONS (7)
  - DRUG EXPOSURE DURING PREGNANCY [None]
  - DRUG INEFFECTIVE [None]
  - FOOD POISONING [None]
  - HYPEREMESIS GRAVIDARUM [None]
  - NAUSEA [None]
  - PREGNANCY [None]
  - SUPPRESSED LACTATION [None]
